FAERS Safety Report 6465868-6 (Version None)
Quarter: 2009Q4

REPORT INFORMATION
  Report Type: 
  Country: None (occurrence: None)
  Receive Date: 20091127
  Receipt Date: 20091116
  Transmission Date: 20100525
  Serious: Yes (Other)
  Sender: FDA-Public Use
  Company Number: 232484K09USA

PATIENT
  Age: 46 Year
  Sex: Female
  Weight: 86 kg

DRUGS (3)
  1. REBIF [Suspect]
     Indication: MULTIPLE SCLEROSIS
     Dosage: 44 MCG, 3 IN 1 WEEKS, SUBCUTANEOUS
     Route: 058
     Dates: start: 20060101, end: 20090101
  2. LOTENSIN [Concomitant]
  3. SYNTHROID [Concomitant]

REACTIONS (3)
  - PROGRESSIVE MULTIPLE SCLEROSIS [None]
  - SENSATION OF HEAVINESS [None]
  - VITH NERVE PARALYSIS [None]
